FAERS Safety Report 18131538 (Version 2)
Quarter: 2020Q3

REPORT INFORMATION
  Report Type: Other
  Country: JP (occurrence: JP)
  Receive Date: 20200810
  Receipt Date: 20200824
  Transmission Date: 20201103
  Serious: Yes (Other)
  Sender: FDA-Public Use
  Company Number: JP-ROCHE-2655363

PATIENT

DRUGS (10)
  1. LEUCOVORIN. [Suspect]
     Active Substance: LEUCOVORIN
     Indication: COLORECTAL CANCER METASTATIC
     Route: 065
  2. TEGAFUR;URACIL [Suspect]
     Active Substance: TEGAFUR\URACIL
     Indication: COLORECTAL CANCER METASTATIC
     Route: 065
  3. TS?1 [Suspect]
     Active Substance: GIMERACIL\OTERACIL\TEGAFUR
     Indication: COLORECTAL CANCER METASTATIC
     Route: 065
  4. PANITUMUMAB [Suspect]
     Active Substance: PANITUMUMAB
     Indication: COLORECTAL CANCER METASTATIC
     Route: 065
  5. CAPECITABINE. [Suspect]
     Active Substance: CAPECITABINE
     Indication: COLORECTAL CANCER METASTATIC
     Route: 065
  6. BEVACIZUMAB. [Suspect]
     Active Substance: BEVACIZUMAB
     Indication: COLORECTAL CANCER METASTATIC
     Route: 065
  7. IRINOTECAN [Suspect]
     Active Substance: IRINOTECAN
     Indication: COLORECTAL CANCER METASTATIC
     Route: 065
  8. CETUXIMAB. [Suspect]
     Active Substance: CETUXIMAB
     Indication: COLORECTAL CANCER METASTATIC
     Route: 065
  9. 5?FLUOROURACIL [Suspect]
     Active Substance: FLUOROURACIL
     Indication: COLORECTAL CANCER METASTATIC
     Route: 048
  10. OXALIPLATIN. [Suspect]
     Active Substance: OXALIPLATIN
     Indication: COLORECTAL CANCER METASTATIC
     Route: 065

REACTIONS (19)
  - Decreased appetite [Unknown]
  - Stomatitis [Unknown]
  - Bradycardia [Unknown]
  - Cerebral infarction [Unknown]
  - Pigmentation disorder [Unknown]
  - Fatigue [Unknown]
  - Thrombocytopenia [Unknown]
  - Leukopenia [Unknown]
  - Proteinuria [Unknown]
  - Nausea [Unknown]
  - Rash [Unknown]
  - Neutropenia [Unknown]
  - Lacrimation increased [Unknown]
  - Febrile neutropenia [Unknown]
  - Anaemia [Unknown]
  - Peripheral nerve palsy [Unknown]
  - Gastrointestinal perforation [Unknown]
  - Conjunctivitis [Unknown]
  - Palmar-plantar erythrodysaesthesia syndrome [Unknown]
